FAERS Safety Report 17918179 (Version 1)
Quarter: 2020Q2

REPORT INFORMATION
  Report Type: Spontaneous
  Country: DE (occurrence: DE)
  Receive Date: 20200619
  Receipt Date: 20200619
  Transmission Date: 20200714
  Serious: Yes (Hospitalization)
  Sender: FDA-Public Use
  Company Number: DE-MYLANLABS-2020M1057691

PATIENT
  Age: 25 Month
  Sex: Female
  Weight: 11 kg

DRUGS (1)
  1. TORASEMIDE [Suspect]
     Active Substance: TORSEMIDE
     Indication: PRODUCT USED FOR UNKNOWN INDICATION
     Dosage: DAILY DOSE: 20 MG MILLGRAM(S) EVERY TOTAL
     Route: 048
     Dates: start: 20181005

REACTIONS (4)
  - No adverse event [Recovered/Resolved]
  - Accidental exposure to product by child [Recovered/Resolved]
  - Product administration error [Recovered/Resolved]
  - Product storage error [Recovered/Resolved]

NARRATIVE: CASE EVENT DATE: 20181005
